FAERS Safety Report 21531654 (Version 1)
Quarter: 2022Q4

REPORT INFORMATION
  Report Type: Spontaneous
  Country: US (occurrence: None)
  Receive Date: 20221028
  Receipt Date: 20221028
  Transmission Date: 20230112
  Serious: Yes (Hospitalization)
  Sender: FDA-Public Use
  Company Number: None

PATIENT
  Age: 47 Year
  Sex: Male

DRUGS (2)
  1. SUMATRIPTAN [Suspect]
     Active Substance: SUMATRIPTAN
     Indication: Pain
     Route: 048
     Dates: start: 20190808, end: 20220330
  2. SUMATRIPTAN [Suspect]
     Active Substance: SUMATRIPTAN
     Indication: Migraine

REACTIONS (5)
  - Symptom recurrence [None]
  - Arteriospasm coronary [None]
  - Electrocardiogram T wave inversion [None]
  - Prohormone brain natriuretic peptide increased [None]
  - Troponin increased [None]

NARRATIVE: CASE EVENT DATE: 20220330
